FAERS Safety Report 25598280 (Version 1)
Quarter: 2025Q3

REPORT INFORMATION
  Report Type: Spontaneous
  Country: EU (occurrence: EU)
  Receive Date: 20250723
  Receipt Date: 20250723
  Transmission Date: 20251021
  Serious: Yes (Life-Threatening, Other)
  Sender: PURDUE
  Company Number: EU-NAPPMUNDI-GBR-2025-0127454

PATIENT
  Age: 4 Year
  Sex: Male

DRUGS (1)
  1. MORPHINE SULFATE [Suspect]
     Active Substance: MORPHINE SULFATE
     Indication: Product used for unknown indication
     Route: 065

REACTIONS (3)
  - Respiratory depression [Recovered/Resolved]
  - Fibrinous bronchitis [Recovered/Resolved]
  - Product prescribing issue [Unknown]
